FAERS Safety Report 18556530 (Version 1)
Quarter: 2020Q4

REPORT INFORMATION
  Report Type: Spontaneous
  Country: GB (occurrence: GB)
  Receive Date: 20201128
  Receipt Date: 20201128
  Transmission Date: 20210114
  Serious: Yes (Other)
  Sender: FDA-Public Use
  Company Number: GB-ACCORD-209383

PATIENT
  Age: 29 Year
  Sex: Female
  Weight: 61 kg

DRUGS (3)
  1. DESOGESTREL [Concomitant]
     Active Substance: DESOGESTREL
  2. INSTILLAGEL [Concomitant]
     Active Substance: CHLORHEXIDINE GLUCONATE\LIDOCAINE HYDROCHLORIDE
  3. AMITRIPTYLINE [Suspect]
     Active Substance: AMITRIPTYLINE
     Indication: VULVOVAGINAL PAIN
     Dosage: 5MG INITIALLY. REDUCED TO 10MG UNTIL SWITCHED TO ALTERNATIVE.
     Route: 048
     Dates: start: 20200701, end: 20201002

REACTIONS (17)
  - Somnolence [Recovered/Resolved]
  - Breast tenderness [Recovered/Resolved with Sequelae]
  - Vulvovaginal swelling [Recovered/Resolved]
  - Breast pain [Recovered/Resolved]
  - Mood altered [Recovered/Resolved]
  - Breast swelling [Recovered/Resolved]
  - Therapeutic response unexpected [Unknown]
  - Dizziness postural [Recovered/Resolved]
  - Respiratory tract congestion [Recovered/Resolved]
  - Genital discolouration [Recovered/Resolved]
  - Emotional distress [Recovered/Resolved]
  - Dry mouth [Recovered/Resolved]
  - Fatigue [Recovered/Resolved]
  - Heart rate increased [Recovered/Resolved]
  - Off label use [Unknown]
  - Dry eye [Recovered/Resolved]
  - Insomnia [Recovered/Resolved]

NARRATIVE: CASE EVENT DATE: 20200701
